FAERS Safety Report 21116594 (Version 3)
Quarter: 2023Q2

REPORT INFORMATION
  Report Type: Report from Study
  Country: CA (occurrence: CA)
  Receive Date: 20220722
  Receipt Date: 20230602
  Transmission Date: 20230722
  Serious: No
  Sender: FDA-Public Use
  Company Number: CA-BoehringerIngelheim-2022-BI-176160

PATIENT
  Age: 42 Year
  Sex: Male
  Weight: 96 kg

DRUGS (1)
  1. JARDIANCE [Suspect]
     Active Substance: EMPAGLIFLOZIN
     Indication: Diabetes mellitus

REACTIONS (1)
  - Burning sensation [Not Recovered/Not Resolved]
